FAERS Safety Report 5032935-3 (Version None)
Quarter: 2006Q2

REPORT INFORMATION
  Report Type: 
  Country: None (occurrence: None)
  Receive Date: 20060620
  Receipt Date: 20060607
  Transmission Date: 20061013
  Serious: Yes (Life-Threatening, Hospitalization)
  Sender: FDA-Public Use
  Company Number: 200612702BWH

PATIENT
  Age: 82 Year
  Sex: Male

DRUGS (2)
  1. AVELOX [Suspect]
     Indication: CHRONIC OBSTRUCTIVE PULMONARY DISEASE
     Dosage: 400 MG, QD, ORAL
     Route: 048
     Dates: start: 20060411
  2. CLARINEX [Concomitant]

REACTIONS (2)
  - HYPERHIDROSIS [None]
  - SYNCOPE [None]
